FAERS Safety Report 5488051-X (Version None)
Quarter: 2007Q4

REPORT INFORMATION
  Report Type: 
  Country: None (occurrence: None)
  Receive Date: 20071005
  Receipt Date: 20070614
  Transmission Date: 20080405
  Serious: Yes (Hospitalization)
  Sender: FDA-Public Use
  Company Number: SPV1-2007-03344

PATIENT
  Age: 15 Year
  Sex: Male

DRUGS (4)
  1. EQUETRO [Suspect]
     Indication: ABNORMAL BEHAVIOUR
     Dosage: 200 MG, 1X/DAY:QD, ORAL 200 MG, 2X/DAY:BID, ORAL
     Route: 048
     Dates: start: 20060919, end: 20060926
  2. EQUETRO [Suspect]
     Indication: ABNORMAL BEHAVIOUR
     Dosage: 200 MG, 1X/DAY:QD, ORAL 200 MG, 2X/DAY:BID, ORAL
     Route: 048
     Dates: start: 20060926, end: 20061013
  3. ALBUTEROL SULFATE /00139501/ (SALBUTAMOL) [Concomitant]
  4. ADVAIR DISKUS 100/50 [Concomitant]

REACTIONS (2)
  - SKIN HYPERPIGMENTATION [None]
  - STEVENS-JOHNSON SYNDROME [None]
